FAERS Safety Report 9729489 (Version 3)
Quarter: 2015Q3

REPORT INFORMATION
  Report Type: Spontaneous
  Country: US (occurrence: US)
  Receive Date: 20131204
  Receipt Date: 20150804
  Transmission Date: 20151125
  Serious: No
  Sender: FDA-Public Use
  Company Number: US-GILEAD-2009-0021417

PATIENT
  Age: 81 Year
  Sex: Male
  Weight: 61.23 kg

DRUGS (10)
  1. WARFARIN [Concomitant]
     Active Substance: WARFARIN
  2. AMBIEN [Concomitant]
     Active Substance: ZOLPIDEM TARTRATE
  3. METOLAZONE. [Concomitant]
     Active Substance: METOLAZONE
  4. KCL [Concomitant]
     Active Substance: POTASSIUM CHLORIDE
  5. FERROUS SULFATE [Concomitant]
     Active Substance: FERROUS SULFATE\FERROUS SULFATE, DRIED
  6. DEMADEX [Concomitant]
     Active Substance: TORSEMIDE
  7. ATENOLOL. [Concomitant]
     Active Substance: ATENOLOL
  8. LETAIRIS [Suspect]
     Active Substance: AMBRISENTAN
     Indication: PULMONARY ARTERIAL HYPERTENSION
     Dates: start: 200807
  9. ZOCOR [Concomitant]
     Active Substance: SIMVASTATIN
  10. DIGOXIN. [Concomitant]
     Active Substance: DIGOXIN

REACTIONS (1)
  - No therapeutic response [Unknown]
